FAERS Safety Report 7816501-X (Version None)
Quarter: 2011Q4

REPORT INFORMATION
  Report Type: 
  Country: None (occurrence: None)
  Receive Date: 20111017
  Receipt Date: 20111003
  Transmission Date: 20120403
  Serious: Yes (Hospitalization, Other)
  Sender: FDA-Public Use
  Company Number: US-ELI_LILLY_AND_COMPANY-US201008008323

PATIENT
  Sex: Female

DRUGS (25)
  1. MACRODANTIN [Concomitant]
     Dosage: UNK, QD
  2. VICODIN [Concomitant]
     Dosage: UNK, QOD
  3. LUNESTA [Concomitant]
     Dosage: UNK, QD
  4. ZANAFLEX [Concomitant]
     Dosage: UNK, QD
  5. FORTEO [Suspect]
     Dosage: 20 UG, QD
  6. FIORICET [Concomitant]
     Dosage: UNK, QD
  7. PREMARIN [Concomitant]
     Dosage: UNK, QD
  8. FORTEO [Suspect]
     Dosage: 20 UG, QD
  9. PREMARIN [Concomitant]
     Dosage: UNK, QD
  10. ATARAX [Concomitant]
     Dosage: UNK, QD
  11. POTASSIUM [Concomitant]
     Dosage: UNK, QD
  12. FORTEO [Suspect]
     Indication: OSTEOPOROSIS
     Dosage: 20 UG, DAILY (1/D)
     Dates: start: 20100820
  13. CYMBALTA [Suspect]
     Dosage: 30 MG, PRN
  14. AMITIZA [Concomitant]
     Dosage: 24 MG, BID
  15. FORTEO [Suspect]
     Dosage: 20 UG, DAILY (1/D)
  16. DOXEPIN [Concomitant]
     Dosage: UNK, QD
  17. CALCIUM CARBONATE [Concomitant]
     Dosage: UNK, QD
  18. NASONEX [Concomitant]
     Dosage: UNK, QD
  19. NEXIUM [Concomitant]
     Dosage: UNK, QD
  20. SYNTHROID [Concomitant]
     Dosage: UNK, QD
  21. PEPCID AC [Concomitant]
     Dosage: UNK, QD
  22. FORTEO [Suspect]
     Dosage: 20 UG, QD
  23. PHENERGAN HCL [Concomitant]
     Dosage: UNK, QD
  24. TOPAMAX [Concomitant]
     Dosage: UNK, QD
  25. LACTAID [Concomitant]
     Indication: LACTOSE INTOLERANCE
     Dosage: UNK, PRN

REACTIONS (19)
  - NAUSEA [None]
  - BLOOD POTASSIUM ABNORMAL [None]
  - BLOOD DISORDER [None]
  - VOMITING [None]
  - INJECTION SITE HAEMORRHAGE [None]
  - TRANSIENT ISCHAEMIC ATTACK [None]
  - DEHYDRATION [None]
  - BLOOD IRON DECREASED [None]
  - JAW DISORDER [None]
  - CHEST PAIN [None]
  - WEIGHT DECREASED [None]
  - SWELLING [None]
  - DRY MOUTH [None]
  - MALAISE [None]
  - INJECTION SITE HAEMATOMA [None]
  - BLISTER [None]
  - MIGRAINE [None]
  - ERYTHEMA [None]
  - HOSPITALISATION [None]
